FAERS Safety Report 7116332-2 (Version None)
Quarter: 2010Q4

REPORT INFORMATION
  Report Type: 
  Country: None (occurrence: None)
  Receive Date: 20101122
  Receipt Date: 20101115
  Transmission Date: 20110411
  Serious: Yes (Other)
  Sender: FDA-Public Use
  Company Number: A0891417A

PATIENT
  Age: 51 Year
  Sex: Male

DRUGS (5)
  1. SELZENTRY [Suspect]
     Indication: HIV INFECTION
     Dosage: 300MG PER DAY
     Route: 048
     Dates: start: 20101012, end: 20101102
  2. REYATAZ [Concomitant]
  3. ISENTRESS [Concomitant]
  4. WELLBUTRIN SR [Concomitant]
  5. LEVOTHYROXINE SODIUM [Concomitant]

REACTIONS (15)
  - ALANINE AMINOTRANSFERASE INCREASED [None]
  - ASPARTATE AMINOTRANSFERASE INCREASED [None]
  - BLOOD BILIRUBIN INCREASED [None]
  - CHROMATURIA [None]
  - DYSLIPIDAEMIA [None]
  - EPIDERMAL GROWTH FACTOR RECEPTOR DECREASED [None]
  - FATIGUE [None]
  - HEPATITIS [None]
  - INFLUENZA LIKE ILLNESS [None]
  - JAUNDICE [None]
  - LIPODYSTROPHY ACQUIRED [None]
  - LIVER DISORDER [None]
  - NAUSEA [None]
  - OCULAR ICTERUS [None]
  - RENAL IMPAIRMENT [None]
